FAERS Safety Report 5198454-9 (Version None)
Quarter: 2006Q4

REPORT INFORMATION
  Report Type: 
  Country: None (occurrence: None)
  Receive Date: 20061229
  Receipt Date: 20061227
  Transmission Date: 20070319
  Serious: Yes (Other)
  Sender: FDA-Public Use
  Company Number: S06-USA-04370-01

PATIENT
  Age: 56 Year
  Sex: Male

DRUGS (3)
  1. LEXAPRO [Suspect]
     Indication: ANXIETY
     Dosage: 20 MG QD PO
     Route: 048
     Dates: start: 20060101, end: 20061001
  2. LEXAPRO [Suspect]
     Indication: STRESS
     Dosage: 20 MG QD PO
     Route: 048
     Dates: start: 20060101, end: 20061001
  3. EFFEXOR [Suspect]
     Indication: ANXIETY
     Dates: start: 20060101, end: 20061001

REACTIONS (5)
  - ABNORMAL BEHAVIOUR [None]
  - CONFUSIONAL STATE [None]
  - CONVULSION [None]
  - DISORIENTATION [None]
  - LOSS OF CONSCIOUSNESS [None]
